FAERS Safety Report 5652112-2 (Version None)
Quarter: 2008Q1

REPORT INFORMATION
  Report Type: 
  Country: None (occurrence: None)
  Receive Date: 20080131
  Receipt Date: 20071119
  Transmission Date: 20080703
  Serious: No
  Sender: FDA-Public Use
  Company Number: US200711004846

PATIENT
  Age: 72 Year
  Sex: Female
  Weight: 95.2 kg

DRUGS (5)
  1. BYETTA [Suspect]
     Indication: TYPE 2 DIABETES MELLITUS
     Dosage: 5 UG, 2/D, SUBCUTANEOUS ; 10 MG, 2/D, SUBCUTANEOUS
     Route: 058
     Dates: start: 20050101
  2. BYETTA [Suspect]
     Indication: TYPE 2 DIABETES MELLITUS
     Dosage: 5 UG, 2/D, SUBCUTANEOUS ; 10 MG, 2/D, SUBCUTANEOUS
     Route: 058
     Dates: start: 20060101
  3. AMARYL [Concomitant]
  4. COUMADIN [Concomitant]
  5. METHOTREXATE [Concomitant]

REACTIONS (4)
  - INJECTION SITE BRUISING [None]
  - PHARYNGOLARYNGEAL PAIN [None]
  - SYSTEMIC LUPUS ERYTHEMATOSUS [None]
  - WEIGHT DECREASED [None]
